FAERS Safety Report 6331372-9 (Version None)
Quarter: 2009Q3

REPORT INFORMATION
  Report Type: 
  Country: None (occurrence: None)
  Receive Date: 20090827
  Receipt Date: 20090821
  Transmission Date: 20100115
  Serious: Yes (Hospitalization)
  Sender: FDA-Public Use
  Company Number: US-ABBOTT-08P-163-0469128-00

PATIENT
  Sex: Female
  Weight: 54.026 kg

DRUGS (6)
  1. HUMIRA [Suspect]
     Indication: RHEUMATOID ARTHRITIS
     Route: 058
     Dates: start: 20070701
  2. ALBUTEROL [Concomitant]
     Indication: ASTHMA
     Route: 055
  3. ALBUTEROL [Concomitant]
     Indication: HYPERSENSITIVITY
  4. ADVAIR HFA [Concomitant]
     Indication: ASTHMA
     Route: 055
  5. ADVAIR HFA [Concomitant]
     Indication: HYPERSENSITIVITY
  6. PREDNISONE TAB [Concomitant]
     Indication: HYPERSENSITIVITY
     Dosage: UP TO 20 MILLIGRAMS AS NEEDED
     Route: 048
     Dates: start: 20080501, end: 20080501

REACTIONS (5)
  - BLOOD GLUCOSE INCREASED [None]
  - DRUG DELIVERY SYSTEM MALFUNCTION [None]
  - INCORRECT DOSE ADMINISTERED [None]
  - INJECTION SITE PAIN [None]
  - SHOULDER ARTHROPLASTY [None]
